FAERS Safety Report 8729758 (Version 2)
Quarter: 2012Q4

REPORT INFORMATION
  Report Type: 
  Country: US (occurrence: US)
  Receive Date: 20120817
  Receipt Date: 20120829
  Transmission Date: 20130627
  Serious: Yes (Other)
  Sender: FDA-Public Use
  Company Number: US-UCBSA-063651

PATIENT
  Age: 62 None
  Sex: Female
  Weight: 97.5 kg

DRUGS (7)
  1. CIMZIA [Suspect]
     Indication: RHEUMATOID ARTHRITIS
     Route: 058
     Dates: start: 201201, end: 201203
  2. CIMZIA [Suspect]
     Indication: RHEUMATOID ARTHRITIS
     Route: 058
     Dates: start: 201203
  3. ZYRTEC [Concomitant]
     Indication: HYPERSENSITIVITY
     Dosage: ONCE AT BED TIME
     Route: 048
  4. PANTOPRAZOLE [Concomitant]
     Indication: GASTROOESOPHAGEAL REFLUX DISEASE
     Dosage: SINCE 5 YEARS
     Route: 048
  5. GABAPENTIN [Concomitant]
     Indication: NEUROPATHY PERIPHERAL
     Dosage: SINCE 6 MONTHS OR SO
     Route: 048
  6. GENERIC ZALITIAN [Concomitant]
     Indication: GLAUCOMA
     Dosage: 0.005% , I DROP IN EACH EYE AT BED TIME, SINCE 10-15 YEARS
     Route: 047
  7. VICODAN [Concomitant]
     Indication: ARTHRALGIA
     Dosage: 500 MG, 1/2 PILL (250 MG) ABOUT AN HOUR BEFORE BED, FROM ABOUT 2 MONTHS
     Route: 048
     Dates: start: 2012

REACTIONS (5)
  - Sinusitis [Recovered/Resolved]
  - Migraine [Recovered/Resolved]
  - Diplopia [Recovered/Resolved]
  - Lethargy [Recovered/Resolved]
  - Asthenia [Recovered/Resolved]
